FAERS Safety Report 4300935-4 (Version None)
Quarter: 2004Q1

REPORT INFORMATION
  Report Type: 
  Country: None (occurrence: None)
  Receive Date: 20040219
  Receipt Date: 20040205
  Transmission Date: 20041129
  Serious: Yes (Other)
  Sender: FDA-Public Use
  Company Number: 2004197600FR

PATIENT

DRUGS (1)
  1. SOLU-MEDROL [Suspect]
     Dosage: 1 UNK, SINGLE , INTRAMUSCULAR
     Route: 030

REACTIONS (3)
  - ASEPTIC NECROSIS BONE [None]
  - FUNGAL INFECTION [None]
  - MUSCLE NECROSIS [None]
